FAERS Safety Report 12979651 (Version 1)
Quarter: 2016Q4

REPORT INFORMATION
  Report Type: Spontaneous
  Country: JP (occurrence: JP)
  Receive Date: 20161128
  Receipt Date: 20161128
  Transmission Date: 20170207
  Serious: Yes (Hospitalization)
  Sender: FDA-Public Use
  Company Number: JP-PFIZER INC-2016549803

PATIENT
  Age: 6 Decade
  Sex: Female

DRUGS (1)
  1. WYPAX [Suspect]
     Active Substance: LORAZEPAM
     Route: 048

REACTIONS (4)
  - Electrocardiogram QT prolonged [Unknown]
  - Arrhythmia [Unknown]
  - Cardiac arrest [Unknown]
  - Hypokalaemia [Unknown]
